FAERS Safety Report 16136162 (Version 4)
Quarter: 2019Q2

REPORT INFORMATION
  Report Type: Spontaneous
  Country: US (occurrence: US)
  Receive Date: 20190329
  Receipt Date: 20190531
  Transmission Date: 20190711
  Serious: Yes (Hospitalization, Other)
  Sender: FDA-Public Use
  Company Number: US-ELI_LILLY_AND_COMPANY-US201903013365

PATIENT

DRUGS (1)
  1. EMGALITY [Suspect]
     Active Substance: GALCANEZUMAB-GNLM
     Indication: PRODUCT USED FOR UNKNOWN INDICATION
     Dosage: UNK, UNKNOWN
     Route: 065
     Dates: start: 20190213

REACTIONS (12)
  - Migraine [Unknown]
  - Drug hypersensitivity [Recovered/Resolved]
  - Throat tightness [Recovered/Resolved]
  - Dehydration [Unknown]
  - Asthenia [Unknown]
  - Weight decreased [Unknown]
  - Oral candidiasis [Unknown]
  - Headache [Unknown]
  - Oropharyngeal pain [Recovered/Resolved]
  - Malaise [Unknown]
  - Fall [Unknown]
  - Lower limb fracture [Unknown]
